FAERS Safety Report 5402454-0 (Version None)
Quarter: 2007Q3

REPORT INFORMATION
  Report Type: 
  Country: None (occurrence: None)
  Receive Date: 20070801
  Receipt Date: 20060619
  Transmission Date: 20080115
  Serious: No
  Sender: FDA-Public Use
  Company Number: A0607942A

PATIENT
  Age: 29 Year
  Sex: Female

DRUGS (2)
  1. IMITREX [Suspect]
     Indication: MIGRAINE
     Dosage: 100MG AS REQUIRED
     Route: 048
     Dates: start: 20060516, end: 20060516
  2. ADDERALL 10 [Concomitant]

REACTIONS (3)
  - FLUSHING [None]
  - HYPERSENSITIVITY [None]
  - NAUSEA [None]
